FAERS Safety Report 5475001-5 (Version None)
Quarter: 2007Q3

REPORT INFORMATION
  Report Type: 
  Country: None (occurrence: None)
  Receive Date: 20070831
  Receipt Date: 20070614
  Transmission Date: 20080115
  Serious: Yes (Other)
  Sender: FDA-Public Use
  Company Number: 242564

PATIENT
  Sex: Female

DRUGS (2)
  1. LUCENTIS [Suspect]
     Indication: MACULAR DEGENERATION
     Dosage: 0.1 ML, INTRAVITREAL
     Dates: start: 20070531
  2. ZYMAR [Concomitant]

REACTIONS (1)
  - ENDOPHTHALMITIS [None]
